FAERS Safety Report 6574542-7 (Version None)
Quarter: 2010Q1

REPORT INFORMATION
  Report Type: 
  Country: None (occurrence: None)
  Receive Date: 20100209
  Receipt Date: 20090715
  Transmission Date: 20100710
  Serious: No
  Sender: FDA-Public Use
  Company Number: A0797115A

PATIENT
  Age: 47 Year
  Sex: Male

DRUGS (2)
  1. PAXIL CR [Suspect]
     Indication: MAJOR DEPRESSION
     Dosage: 25MG PER DAY
     Route: 048
     Dates: start: 20020101
  2. LIPITOR [Concomitant]

REACTIONS (7)
  - DISABILITY [None]
  - DIZZINESS [None]
  - DYSPNOEA [None]
  - IRRITABILITY [None]
  - PANIC ATTACK [None]
  - WEIGHT INCREASED [None]
  - WITHDRAWAL SYNDROME [None]
